FAERS Safety Report 5361508-8 (Version None)
Quarter: 2007Q2

REPORT INFORMATION
  Report Type: 
  Country: None (occurrence: None)
  Receive Date: 20070619
  Receipt Date: 20070608
  Transmission Date: 20071010
  Serious: Yes (Hospitalization)
  Sender: FDA-Public Use
  Company Number: PHHO2007ES09649

PATIENT
  Age: 71 Year
  Sex: Male

DRUGS (3)
  1. CYCLOSPORINE [Suspect]
     Indication: RENAL TRANSPLANT
     Dosage: 325 MG, QD
     Dates: start: 20070220
  2. PREDNISONE TAB [Concomitant]
     Indication: RENAL TRANSPLANT
     Dosage: 20 MG, QD
     Dates: start: 20070301
  3. CELLCEPT [Concomitant]
     Indication: RENAL TRANSPLANT
     Dosage: 500 MG, BID
     Dates: start: 20070312

REACTIONS (3)
  - ESCHERICHIA URINARY TRACT INFECTION [None]
  - INCISIONAL DRAINAGE [None]
  - LYMPHOCELE [None]
